FAERS Safety Report 16185014 (Version 2)
Quarter: 2019Q2

REPORT INFORMATION
  Report Type: Spontaneous
  Country: JP (occurrence: JP)
  Receive Date: 20190411
  Receipt Date: 20190418
  Transmission Date: 20190711
  Serious: Yes (Hospitalization, Other)
  Sender: FDA-Public Use
  Company Number: JP-BAYER-2019-072538

PATIENT
  Age: 54 Year
  Sex: Female

DRUGS (2)
  1. GADOVIST [Suspect]
     Active Substance: GADOBUTROL
     Indication: NUCLEAR MAGNETIC RESONANCE IMAGING
     Dosage: 5 ML, ONCE
     Route: 042
     Dates: start: 20190409, end: 20190409
  2. BAYASPIRIN 100 MG [Suspect]
     Active Substance: ASPIRIN
     Dosage: DAILY DOSE 2 DF
     Route: 048

REACTIONS (11)
  - Arteriospasm coronary [None]
  - Nausea [Recovered/Resolved]
  - Feeling cold [Recovered/Resolved]
  - Anaphylactic shock [Recovered/Resolved]
  - Pallor [Recovered/Resolved]
  - Angina unstable [None]
  - Headache [Recovered/Resolved]
  - Myocardial infarction [None]
  - Ventricular hypokinesia [None]
  - Discomfort [Recovered/Resolved]
  - Cold sweat [Recovered/Resolved]

NARRATIVE: CASE EVENT DATE: 20190409
